FAERS Safety Report 5848913-8 (Version None)
Quarter: 2008Q3

REPORT INFORMATION
  Report Type: 
  Country: None (occurrence: None)
  Receive Date: 20080819
  Receipt Date: 20080808
  Transmission Date: 20090109
  Serious: Yes (Death)
  Sender: FDA-Public Use
  Company Number: US-RANBAXY-2008RR-17164

PATIENT

DRUGS (5)
  1. PSEUDOEPHEDRINE HYDROCHLORIDE [Suspect]
     Indication: COUGH
  2. PSEUDOEPHEDRINE HYDROCHLORIDE [Suspect]
     Indication: NASOPHARYNGITIS
  3. DEXTROMETHORPHAN [Suspect]
     Indication: COUGH
  4. CARBINOXAMINE MALEATE [Suspect]
  5. ATROPINE [Suspect]

REACTIONS (1)
  - DEATH [None]
